FAERS Safety Report 16596775 (Version 1)
Quarter: 2019Q3

REPORT INFORMATION
  Report Type: Spontaneous
  Country: US (occurrence: US)
  Receive Date: 20190718
  Receipt Date: 20190718
  Transmission Date: 20191004
  Serious: Yes (Disabling)
  Sender: FDA-Public Use
  Company Number: None

PATIENT
  Age: 43 Year
  Sex: Male
  Weight: 78.75 kg

DRUGS (3)
  1. EQUATE RESTORE PM NIGHTTIME LUBRICANT EYE [Suspect]
     Active Substance: MINERAL OIL\PETROLATUM
     Indication: BLEPHARITIS
     Dosage: ?          QUANTITY:0.25 INCH;?
     Route: 047
     Dates: start: 20180717, end: 20190707
  2. HYDROCORTISONE/FUNGICIDE [Concomitant]
  3. REFRESH CELLUVISC [Concomitant]
     Active Substance: CARBOXYMETHYLCELLULOSE SODIUM

REACTIONS (5)
  - Recalled product [None]
  - Adhesion [None]
  - Eyelid disorder [None]
  - Eyelid infection [None]
  - Acne [None]

NARRATIVE: CASE EVENT DATE: 20180725
